FAERS Safety Report 6557993-6 (Version None)
Quarter: 2010Q1

REPORT INFORMATION
  Report Type: 
  Country: None (occurrence: None)
  Receive Date: 20100129
  Receipt Date: 20100121
  Transmission Date: 20100710
  Serious: Yes (Death, Life-Threatening, Other)
  Sender: FDA-Public Use
  Company Number: JP-ROCHE-534654

PATIENT
  Sex: Male
  Weight: 60 kg

DRUGS (44)
  1. BEVACIZUMAB [Suspect]
     Indication: RECTAL CANCER RECURRENT
     Dosage: INFUSED FOR 90 MIN
     Route: 041
     Dates: start: 20070712, end: 20070712
  2. BEVACIZUMAB [Suspect]
     Dosage: INFUSED FOR 60MIN
     Route: 041
     Dates: start: 20070726, end: 20070726
  3. BEVACIZUMAB [Suspect]
     Dosage: INFUSED FOR 30MIN.
     Route: 041
     Dates: start: 20070807, end: 20070807
  4. BEVACIZUMAB [Suspect]
     Dosage: INFUSED FOR 90MIN.
     Route: 041
     Dates: start: 20070823, end: 20070823
  5. BEVACIZUMAB [Suspect]
     Dosage: INFUSED FOR 30MIN.
     Route: 041
     Dates: start: 20070913, end: 20070913
  6. BEVACIZUMAB [Suspect]
     Route: 041
     Dates: start: 20071004, end: 20071004
  7. BEVACIZUMAB [Suspect]
     Route: 041
     Dates: start: 20071101, end: 20071101
  8. BEVACIZUMAB [Suspect]
     Route: 041
     Dates: start: 20071122, end: 20071122
  9. ELPLAT [Concomitant]
     Route: 041
     Dates: end: 20070630
  10. ELPLAT [Concomitant]
     Route: 041
     Dates: start: 20070712, end: 20070712
  11. ELPLAT [Concomitant]
     Route: 041
     Dates: start: 20070726, end: 20070726
  12. ELPLAT [Concomitant]
     Route: 041
     Dates: start: 20070807, end: 20070807
  13. ELPLAT [Concomitant]
     Route: 041
     Dates: start: 20070823, end: 20070823
  14. ELPLAT [Concomitant]
     Route: 041
     Dates: start: 20070913, end: 20070913
  15. ELPLAT [Concomitant]
     Route: 041
     Dates: start: 20071004, end: 20071004
  16. ELPLAT [Concomitant]
     Route: 041
     Dates: start: 20071101, end: 20071101
  17. ELPLAT [Concomitant]
     Route: 041
     Dates: start: 20071122, end: 20071122
  18. 5-FU [Concomitant]
     Dosage: ROUTE: INTRAVENOUS BOLUS
     Route: 042
     Dates: end: 20070701
  19. 5-FU [Concomitant]
     Dosage: ROUTE: INTRAVENOUS DRIP
     Route: 042
     Dates: end: 20070701
  20. 5-FU [Concomitant]
     Dosage: ROUTE: INTRAVENOUS BOLUS
     Route: 042
     Dates: start: 20070712, end: 20070713
  21. 5-FU [Concomitant]
     Dosage: ROUTE: INTRAVENOUS DRIP
     Route: 042
     Dates: start: 20070712, end: 20070713
  22. 5-FU [Concomitant]
     Dosage: ROUTE: INTRAVENOUS BOLUS
     Route: 042
     Dates: start: 20070726, end: 20070727
  23. 5-FU [Concomitant]
     Dosage: ROUTE: INTRAVENOUS DRIP
     Route: 042
     Dates: start: 20070726, end: 20070727
  24. 5-FU [Concomitant]
     Dosage: ROUTE: INTRAVENOUS BOLUS
     Route: 042
     Dates: start: 20070807, end: 20070808
  25. 5-FU [Concomitant]
     Dosage: ROUTE: INTRAVENOUS DRIP
     Route: 042
     Dates: start: 20070807, end: 20070808
  26. 5-FU [Concomitant]
     Dosage: ROUTE: INTRAVENOUS BOLUS, FREQUENCY REPORTED AS /1DAY(S)
     Route: 042
     Dates: start: 20070823, end: 20070824
  27. 5-FU [Concomitant]
     Route: 042
     Dates: start: 20070823, end: 20070824
  28. 5-FU [Concomitant]
     Dosage: ROUTE: INTRAVENOUS BOLUS
     Route: 042
     Dates: start: 20070913, end: 20070914
  29. 5-FU [Concomitant]
     Dosage: ROUTE: INTRAVENOUS DRIP
     Route: 042
     Dates: start: 20070913, end: 20070914
  30. 5-FU [Concomitant]
     Dosage: ROUTE: INTRAVENOUS BOLUS
     Route: 042
     Dates: start: 20071004, end: 20071005
  31. 5-FU [Concomitant]
     Dosage: ROUTE: INTRAVENOUS DRIP
     Route: 042
     Dates: start: 20071004, end: 20071005
  32. 5-FU [Concomitant]
     Route: 042
     Dates: start: 20071101, end: 20071102
  33. 5-FU [Concomitant]
     Dosage: ROUTE: INTRAVENOUS DRIP
     Route: 042
     Dates: start: 20071101, end: 20071102
  34. 5-FU [Concomitant]
     Dosage: ROUTE: INTRAVENOUS BOLUS
     Route: 042
     Dates: start: 20071122, end: 20071123
  35. 5-FU [Concomitant]
     Dosage: ROUTE: INTRAVENOUS DRIP
     Route: 042
     Dates: start: 20071122, end: 20071123
  36. CALCIUM LEVOFOLINATE [Concomitant]
     Route: 041
     Dates: end: 20070701
  37. CALCIUM LEVOFOLINATE [Concomitant]
     Route: 041
     Dates: start: 20070712, end: 20070713
  38. CALCIUM LEVOFOLINATE [Concomitant]
     Route: 041
     Dates: start: 20070726, end: 20070727
  39. CALCIUM LEVOFOLINATE [Concomitant]
     Route: 041
     Dates: start: 20070807, end: 20070808
  40. CALCIUM LEVOFOLINATE [Concomitant]
     Route: 041
     Dates: start: 20070823, end: 20070824
  41. CALCIUM LEVOFOLINATE [Concomitant]
     Route: 041
     Dates: start: 20070913, end: 20070914
  42. CALCIUM LEVOFOLINATE [Concomitant]
     Route: 041
     Dates: start: 20071004, end: 20071005
  43. CALCIUM LEVOFOLINATE [Concomitant]
     Route: 041
     Dates: start: 20071101, end: 20071102
  44. CALCIUM LEVOFOLINATE [Concomitant]
     Route: 041
     Dates: start: 20071122, end: 20071123

REACTIONS (4)
  - DISEASE PROGRESSION [None]
  - LARGE INTESTINE PERFORATION [None]
  - NAUSEA [None]
  - NEUTROPHIL COUNT DECREASED [None]
